FAERS Safety Report 10611620 (Version 1)
Quarter: 2014Q4

REPORT INFORMATION
  Report Type: Spontaneous
  Country: US (occurrence: US)
  Receive Date: 20141126
  Receipt Date: 20141126
  Transmission Date: 20150529
  Serious: No
  Sender: FDA-Public Use
  Company Number: US-GLAXOSMITHKLINE-A1082666A

PATIENT

DRUGS (2)
  1. NO CONCURRENT MEDICATION [Concomitant]
     Active Substance: UNSPECIFIED INGREDIENT
  2. FLOVENT [Suspect]
     Active Substance: FLUTICASONE PROPIONATE
     Indication: ASTHMA
     Dosage: ROTA 100MCG
     Route: 055
     Dates: start: 201407

REACTIONS (4)
  - Lung disorder [Unknown]
  - Drug administration error [Not Recovered/Not Resolved]
  - Dysphonia [Unknown]
  - Chest pain [Unknown]

NARRATIVE: CASE EVENT DATE: 201407
